FAERS Safety Report 9516556 (Version 1)
Quarter: 2013Q1

REPORT INFORMATION
  Report Type: Spontaneous
  Country: US (occurrence: None)
  Receive Date: 20130305
  Receipt Date: 20130305
  Transmission Date: 20140127
  Serious: Yes (Other)
  Sender: FDA-Public Use
  Company Number: 163-21880-12080621

PATIENT
  Age: 60 Year
  Sex: Male
  Weight: 80.87 kg

DRUGS (8)
  1. REVLIMID [Suspect]
     Indication: PLASMA CELL MYELOMA
     Dosage: 5 MG, 1 IN 2 D, PO
     Route: 048
     Dates: start: 20120118
  2. LANSOPRAZOLE (LANSOPRAZOLE) [Concomitant]
  3. METOPROLOL SUCCINATE (METOPROLOL SUCCINATE) (TABLETS) [Concomitant]
  4. HYDROCODONE / ACETAMINOPHEN (REMEDEINE) (TABLETS) [Concomitant]
  5. LISINOPRIL (LISINOPRIL) (TABLETS) [Concomitant]
  6. FOLIC ACID / VITAMIN B COMPLEX (TETRAFOLEVIT) (CAPSULES) [Concomitant]
  7. SIMVASTATIN (SIMVASTATIN) (CAPSULES) [Concomitant]
  8. ASPIRIN (ACETYLSALICYLIC ACID) (CHEWABLE TABLET) [Concomitant]

REACTIONS (2)
  - Platelet count decreased [None]
  - Full blood count decreased [None]
